FAERS Safety Report 5199663-5 (Version None)
Quarter: 2007Q1

REPORT INFORMATION
  Report Type: 
  Country: None (occurrence: None)
  Receive Date: 20070103
  Receipt Date: 20070103
  Transmission Date: 20070707
  Serious: Yes (Death)
  Sender: FDA-Public Use
  Company Number: None

PATIENT
  Age: 90 Year
  Sex: Female

DRUGS (2)
  1. LISINOPRIL [Suspect]
     Dosage: 40MG  DAILY  PO (HOME MEDICATION)
     Route: 048
  2. LODINE [Suspect]
     Dosage: 500MG  BID  PO (HOME MEDICATION)

REACTIONS (10)
  - BLOOD PRESSURE DECREASED [None]
  - CARDIO-RESPIRATORY ARREST [None]
  - ELECTROCARDIOGRAM CHANGE [None]
  - EPIGASTRIC DISCOMFORT [None]
  - HEART RATE DECREASED [None]
  - HYPERKALAEMIA [None]
  - LOSS OF CONSCIOUSNESS [None]
  - MENTAL STATUS CHANGES [None]
  - METABOLIC ACIDOSIS [None]
  - RENAL FAILURE ACUTE [None]
